FAERS Safety Report 6283954-0 (Version None)
Quarter: 2009Q3

REPORT INFORMATION
  Report Type: 
  Country: None (occurrence: None)
  Receive Date: 20090723
  Receipt Date: 20090723
  Transmission Date: 20100115
  Serious: No
  Sender: FDA-Public Use
  Company Number: None

PATIENT
  Sex: Female

DRUGS (2)
  1. TRILEPTAL [Suspect]
     Indication: CONVULSION
     Dosage: TWO PO BID
     Route: 048
  2. TRILEPTAL [Suspect]
     Indication: STATUS EPILEPTICUS
     Dosage: TWO PO BID
     Route: 048

REACTIONS (1)
  - PRODUCT SUBSTITUTION ISSUE [None]
